FAERS Safety Report 5907147-9 (Version None)
Quarter: 2008Q4

REPORT INFORMATION
  Report Type: 
  Country: None (occurrence: None)
  Receive Date: 20081003
  Receipt Date: 20080814
  Transmission Date: 20090506
  Serious: No
  Sender: FDA-Public Use
  Company Number: US-BAYER-200831328NA

PATIENT
  Age: 49 Year
  Sex: Female

DRUGS (1)
  1. ANGELIQ [Suspect]
     Indication: MENOPAUSAL SYMPTOMS
     Route: 048
     Dates: start: 20080728

REACTIONS (3)
  - ABDOMINAL PAIN [None]
  - BACK PAIN [None]
  - METRORRHAGIA [None]
